FAERS Safety Report 8840870 (Version 1)
Quarter: 2012Q4

REPORT INFORMATION
  Report Type: 
  Country: US (occurrence: US)
  Receive Date: 20121015
  Receipt Date: 20121015
  Transmission Date: 20130627
  Serious: No
  Sender: FDA-Public Use
  Company Number: US-ASTRAZENECA-2012SE74961

PATIENT
  Age: 40 Year
  Sex: Male
  Weight: 104.3 kg

DRUGS (4)
  1. SYMBICORT [Suspect]
     Dosage: 160/4.5 MCG, FREQUENCY UNKNOWN
     Route: 055
     Dates: start: 20120925, end: 20120926
  2. VENTOLIN INHALER [Concomitant]
     Indication: ASTHMA
     Dosage: PRN
     Route: 055
  3. ASPIRIN [Concomitant]
     Indication: CHEST DISCOMFORT
     Route: 048
     Dates: start: 201209
  4. ASPIRIN [Concomitant]
     Indication: DYSPNOEA
     Route: 048
     Dates: start: 201209

REACTIONS (3)
  - Dyspnoea [Unknown]
  - Chest pain [Unknown]
  - Musculoskeletal discomfort [Unknown]
